FAERS Safety Report 25413076 (Version 1)
Quarter: 2025Q2

REPORT INFORMATION
  Report Type: Spontaneous
  Country: US (occurrence: None)
  Receive Date: 20250606
  Receipt Date: 20250606
  Transmission Date: 20250717
  Serious: Yes (Hospitalization)
  Sender: FDA-CTU
  Company Number: None

PATIENT
  Age: 73 Year
  Sex: Female
  Weight: 61.23 kg

DRUGS (14)
  1. SKYRIZI [Suspect]
     Active Substance: RISANKIZUMAB-RZAA
     Indication: Crohn^s disease
     Route: 058
     Dates: start: 20241227
  2. OMEPRAZOLE [Concomitant]
     Active Substance: OMEPRAZOLE
  3. CYCLOBENZAPRINE [Concomitant]
     Active Substance: CYCLOBENZAPRINE
  4. CELECOXIB [Concomitant]
     Active Substance: CELECOXIB
  5. Calcium 500mg [Concomitant]
  6. AMBIEN [Concomitant]
     Active Substance: ZOLPIDEM TARTRATE
  7. LEVOTHYROXINE [Concomitant]
     Active Substance: LEVOTHYROXINE
  8. Magnesium 200mg [Concomitant]
  9. Potassium 99mg [Concomitant]
  10. TRAMADOL [Concomitant]
     Active Substance: TRAMADOL
  11. DIETARY SUPPLEMENT\HERBALS\MILK THISTLE [Concomitant]
     Active Substance: MILK THISTLE
  12. ONDANSETRON [Concomitant]
     Active Substance: ONDANSETRON
  13. Artichoke Oil [Concomitant]
  14. DEVICE [Suspect]
     Active Substance: DEVICE

REACTIONS (1)
  - Vascular device infection [None]

NARRATIVE: CASE EVENT DATE: 20250602
